FAERS Safety Report 21638204 (Version 1)
Quarter: 2022Q4

REPORT INFORMATION
  Report Type: Spontaneous
  Country: US (occurrence: US)
  Receive Date: 20221124
  Receipt Date: 20221124
  Transmission Date: 20230113
  Serious: Yes (Other)
  Sender: FDA-Public Use
  Company Number: US-SA-2022SA477429

PATIENT
  Age: 68 Year
  Sex: Female

DRUGS (1)
  1. LEFLUNOMIDE [Suspect]
     Active Substance: LEFLUNOMIDE
     Indication: Rheumatoid arthritis
     Dosage: 20 MG, QD

REACTIONS (21)
  - Deep vein thrombosis [Recovered/Resolved]
  - Pyoderma gangrenosum [Recovered/Resolved]
  - Lymphocytic leukaemia [Recovering/Resolving]
  - Lymphocytosis [Recovering/Resolving]
  - Hyperplasia [Recovering/Resolving]
  - Lymphocytic infiltration [Recovering/Resolving]
  - Skin ulcer [Recovered/Resolved]
  - Impaired healing [Recovered/Resolved]
  - Mucosal pain [Recovered/Resolved]
  - Skin lesion [Recovered/Resolved]
  - Ulcer [Recovered/Resolved]
  - Eschar [Recovered/Resolved]
  - Erythema [Recovered/Resolved]
  - Vascular skin disorder [Recovered/Resolved]
  - Skin fibrosis [Recovered/Resolved]
  - Fat necrosis [Recovered/Resolved]
  - Inflammation [Recovered/Resolved]
  - Thrombocytopenia [Unknown]
  - Neutropenia [Unknown]
  - Anaemia [Unknown]
  - Corynebacterium infection [Recovered/Resolved]
